FAERS Safety Report 5353933-6 (Version None)
Quarter: 2007Q2

REPORT INFORMATION
  Report Type: 
  Country: None (occurrence: None)
  Receive Date: 20070608
  Receipt Date: 20070608
  Transmission Date: 20071010
  Serious: Yes (Other)
  Sender: FDA-Public Use
  Company Number: None

PATIENT
  Age: 62 Year
  Sex: Female
  Weight: 72.5755 kg

DRUGS (1)
  1. PROAIR HFA [Suspect]
     Indication: ASTHMA
     Dosage: 2 INHALATIONS 3 TIMES DAILY PO
     Route: 048
     Dates: start: 20070605, end: 20070605

REACTIONS (3)
  - DEVICE FAILURE [None]
  - DRUG EFFECT DECREASED [None]
  - OBSTRUCTIVE AIRWAYS DISORDER [None]
